FAERS Safety Report 23914798 (Version 1)
Quarter: 2024Q2

REPORT INFORMATION
  Report Type: Other
  Country: US (occurrence: US)
  Receive Date: 20240529
  Receipt Date: 20240529
  Transmission Date: 20240715
  Serious: Yes (Hospitalization)
  Sender: FDA-Public Use
  Company Number: US-Mission Pharmacal Company-2157532

PATIENT
  Age: 73 Year
  Sex: Male

DRUGS (3)
  1. THIOLA EC [Suspect]
     Active Substance: TIOPRONIN
     Indication: Chronic kidney disease
     Route: 048
     Dates: start: 20191004
  2. MORPHINE SULFATE [Concomitant]
     Active Substance: MORPHINE SULFATE
  3. SODIUM BICARBONATE [Concomitant]
     Active Substance: SODIUM BICARBONATE

REACTIONS (1)
  - Renal pain [Unknown]
